FAERS Safety Report 5940515-8 (Version None)
Quarter: 2008Q4

REPORT INFORMATION
  Report Type: 
  Country: None (occurrence: None)
  Receive Date: 20081103
  Receipt Date: 20081103
  Transmission Date: 20090506
  Serious: No
  Sender: FDA-Public Use
  Company Number: None

PATIENT
  Age: 40 Year
  Sex: Male

DRUGS (2)
  1. FINASTERIDE [Suspect]
     Dosage: TABLET 5 MG
  2. METOCLOPRAMIDE [Suspect]
     Dosage: TABLET 5 MG

REACTIONS (4)
  - DRUG DISPENSING ERROR [None]
  - HYPERHIDROSIS [None]
  - INSOMNIA [None]
  - MEDICATION ERROR [None]
